FAERS Safety Report 13270825 (Version 1)
Quarter: 2017Q1

REPORT INFORMATION
  Report Type: Spontaneous
  Country: US (occurrence: US)
  Receive Date: 20170225
  Receipt Date: 20170225
  Transmission Date: 20170428
  Serious: Yes (Hospitalization)
  Sender: FDA-Public Use
  Company Number: US-TEVA-732570ACC

PATIENT
  Age: 81 Year
  Sex: Female
  Weight: 73 kg

DRUGS (1)
  1. FOLINIC ACID/LEUCOVORIN CALCIUM [Suspect]
     Active Substance: LEUCOVORIN CALCIUM
     Dates: start: 20170117

REACTIONS (6)
  - Vertigo [Unknown]
  - Dizziness postural [Unknown]
  - Dehydration [Unknown]
  - Dizziness [Unknown]
  - Vestibular disorder [Unknown]
  - Dizziness [Unknown]

NARRATIVE: CASE EVENT DATE: 20170117
